FAERS Safety Report 10442137 (Version 1)
Quarter: 2014Q3

REPORT INFORMATION
  Report Type: Spontaneous
  Country: DE (occurrence: DE)
  Receive Date: 20140909
  Receipt Date: 20140909
  Transmission Date: 20150326
  Serious: Yes (Other)
  Sender: FDA-Public Use
  Company Number: DE-BRISTOL-MYERS SQUIBB COMPANY-21368899

PATIENT
  Age: 89 Year
  Sex: Male

DRUGS (1)
  1. ELIQUIS [Suspect]
     Active Substance: APIXABAN
     Dosage: TABS; PRESCRIBED 2 * 5MG DAILY

REACTIONS (2)
  - Cerebrovascular accident [Unknown]
  - Underdose [Unknown]
